FAERS Safety Report 7231285-4 (Version None)
Quarter: 2011Q1

REPORT INFORMATION
  Report Type: 
  Country: None (occurrence: None)
  Receive Date: 20110118
  Receipt Date: 20110111
  Transmission Date: 20110831
  Serious: Yes (Death)
  Sender: FDA-Public Use
  Company Number: GB-SANOFI-AVENTIS-2011SA002206

PATIENT
  Age: 48 Year
  Sex: Male

DRUGS (2)
  1. CHLOROQUINE PHOSPHATE [Suspect]
     Route: 048
  2. TRAMADOL HCL [Suspect]
     Route: 065

REACTIONS (1)
  - SUDDEN DEATH [None]
